FAERS Safety Report 17275440 (Version 1)
Quarter: 2020Q1

REPORT INFORMATION
  Report Type: Spontaneous
  Country: GB (occurrence: GB)
  Receive Date: 20200116
  Receipt Date: 20200116
  Transmission Date: 20200409
  Serious: Yes (Other)
  Sender: FDA-Public Use
  Company Number: GB-TEVA-2020-GB-1167211

PATIENT
  Age: 62 Year
  Sex: Female
  Weight: 73.02 kg

DRUGS (2)
  1. METRONIDAZOLE. [Suspect]
     Active Substance: METRONIDAZOLE
     Indication: ALVEOLAR OSTEITIS
     Dosage: 1200 MILLIGRAM
     Route: 048
     Dates: start: 20191129, end: 20191201
  2. TAMOXIFEN [Concomitant]
     Active Substance: TAMOXIFEN

REACTIONS (4)
  - Paraesthesia [Recovering/Resolving]
  - Feeling cold [Unknown]
  - Malaise [Unknown]
  - Hypoaesthesia [Recovering/Resolving]

NARRATIVE: CASE EVENT DATE: 20191130
